FAERS Safety Report 8918336 (Version 1)
Quarter: 2012Q4

REPORT INFORMATION
  Report Type: 
  Country: US (occurrence: US)
  Receive Date: 20121120
  Receipt Date: 20121120
  Transmission Date: 20130627
  Serious: No
  Sender: FDA-Public Use
  Company Number: US-ASTRAZENECA-2012SE16937

PATIENT
  Age: 68 Year
  Sex: Female
  Weight: 117.9 kg

DRUGS (5)
  1. NEXIUM [Suspect]
     Indication: GASTROOESOPHAGEAL REFLUX DISEASE
     Route: 048
  2. THEOPHYLLINE [Concomitant]
     Indication: ASTHMA
  3. THEOPHYLLINE [Concomitant]
     Indication: MULTIPLE ALLERGIES
  4. VITAMINS [Concomitant]
  5. MINERALS [Concomitant]

REACTIONS (2)
  - Pharyngeal disorder [Unknown]
  - Hearing impaired [Unknown]
